FAERS Safety Report 20342368 (Version 2)
Quarter: 2022Q1

REPORT INFORMATION
  Report Type: Spontaneous
  Country: DE (occurrence: DE)
  Receive Date: 20220117
  Receipt Date: 20220211
  Transmission Date: 20220423
  Serious: Yes (Other)
  Sender: FDA-Public Use
  Company Number: None

PATIENT
  Age: 50 Year
  Sex: Female

DRUGS (5)
  1. ADALIMUMAB [Suspect]
     Active Substance: ADALIMUMAB
     Indication: Hidradenitis
     Dosage: 40 MILLIGRAM, QW COMBINING WEEKLY ADMINISTRATION OF 40 MG ADALIMUMAB
     Route: 058
  2. ADALIMUMAB [Suspect]
     Active Substance: ADALIMUMAB
     Route: 058
  3. RIFAMPIN [Concomitant]
     Active Substance: RIFAMPIN
     Indication: Hidradenitis
     Dosage: UNKNOWN
     Route: 065
  4. CLINDAMYCIN [Concomitant]
     Active Substance: CLINDAMYCIN
     Indication: Hidradenitis
     Dosage: UNKNOWN
     Route: 065
  5. DOXYCYCLINE [Concomitant]
     Active Substance: DOXYCYCLINE
     Indication: Hidradenitis
     Dosage: UNKNOWN
     Route: 065

REACTIONS (7)
  - Pustular psoriasis [Recovering/Resolving]
  - Psoriatic arthropathy [Recovering/Resolving]
  - Pyoderma gangrenosum [Recovering/Resolving]
  - Synovitis [Unknown]
  - Paradoxical drug reaction [Recovering/Resolving]
  - Drug ineffective [Unknown]
  - Product substitution issue [Unknown]
